FAERS Safety Report 18667929 (Version 1)
Quarter: 2020Q4

REPORT INFORMATION
  Report Type: Spontaneous
  Country: BE (occurrence: BE)
  Receive Date: 20201228
  Receipt Date: 20201228
  Transmission Date: 20210114
  Serious: Yes (Hospitalization)
  Sender: FDA-Public Use
  Company Number: BE-EMD SERONO-9208780

PATIENT
  Sex: Female

DRUGS (1)
  1. MAVENCLAD [Suspect]
     Active Substance: CLADRIBINE
     Indication: MULTIPLE SCLEROSIS
     Dosage: FIRST TREATMENT WEEK
     Route: 048
     Dates: start: 202002

REACTIONS (2)
  - Herpes zoster meningoencephalitis [Unknown]
  - Human herpesvirus 6 infection [Unknown]

NARRATIVE: CASE EVENT DATE: 20201218
